FAERS Safety Report 8822679 (Version 1)
Quarter: 2012Q4

REPORT INFORMATION
  Report Type: 
  Country: ES (occurrence: ES)
  Receive Date: 20121003
  Receipt Date: 20121003
  Transmission Date: 20130627
  Serious: Yes (Hospitalization)
  Sender: FDA-Public Use
  Company Number: ES-BRISTOL-MYERS SQUIBB COMPANY-16991325

PATIENT
  Age: 42 Year
  Sex: Female

DRUGS (6)
  1. REYATAZ CAPS 300 MG [Suspect]
     Indication: HIV INFECTION
     Dosage: Dose:300mg
2009-2011
31Jan2012-28Feb2012
     Route: 048
     Dates: start: 20120131, end: 20120228
  2. TRUVADA [Suspect]
     Indication: HIV INFECTION
     Dosage: Truvada 200mg/245mg
     Route: 048
     Dates: start: 20120131, end: 20120228
  3. RITONAVIR [Suspect]
     Indication: HIV INFECTION
     Dosage: 2009-2011
31Jan2012-28Feb2012(34days).
     Route: 048
     Dates: start: 20120131, end: 20120228
  4. IBUPROFEN [Concomitant]
     Indication: PAIN
     Dosage: 2 times
     Route: 048
     Dates: start: 2012
  5. TRAMADOL HCL [Concomitant]
     Indication: PAIN
     Dosage: 3 times
     Route: 048
     Dates: start: 2012
  6. FOSAVANCE [Concomitant]
     Indication: OSTEOPOROSIS
     Dosage: Alendronate sodium 70mg/Colecalciferol L5600Iu
     Route: 048
     Dates: start: 2012

REACTIONS (1)
  - Osteonecrosis [Recovered/Resolved with Sequelae]
